FAERS Safety Report 13391000 (Version 1)
Quarter: 2017Q1

REPORT INFORMATION
  Report Type: Spontaneous
  Country: US (occurrence: US)
  Receive Date: 20170331
  Receipt Date: 20170331
  Transmission Date: 20170429
  Serious: No
  Sender: FDA-Public Use
  Company Number: US-IMPAX LABORATORIES, INC-2016-IPXL-02033

PATIENT
  Sex: Female

DRUGS (2)
  1. ALENDRONATE SODIUM IR [Suspect]
     Active Substance: ALENDRONATE SODIUM
     Indication: OSTEOPOROSIS
     Dosage: 10 MILLIGRAM DAILY;
     Dates: start: 201511
  2. ALENDRONATE SODIUM IR [Suspect]
     Active Substance: ALENDRONATE SODIUM
     Dosage: 10 MILLIGRAM DAILY;

REACTIONS (5)
  - Dysphagia [Unknown]
  - Product physical issue [Unknown]
  - Drug prescribing error [Unknown]
  - Product difficult to swallow [Unknown]
  - Foreign body [Unknown]

NARRATIVE: CASE EVENT DATE: 2015
